FAERS Safety Report 7603572-9 (Version None)
Quarter: 2011Q3

REPORT INFORMATION
  Report Type: 
  Country: None (occurrence: None)
  Receive Date: 20110712
  Receipt Date: 20110701
  Transmission Date: 20111222
  Serious: Yes (Other)
  Sender: FDA-Public Use
  Company Number: DE-TEVA-288930GER

PATIENT
  Age: 0 Year
  Sex: Female
  Weight: 2.955 kg

DRUGS (4)
  1. PAROXETINE HCL [Suspect]
     Dosage: 10 MILLIGRAM;
     Route: 064
     Dates: start: 20090527
  2. FOLIO FORTE [Concomitant]
     Dosage: .4 MILLIGRAM;
     Route: 064
  3. CITALOPRAM HYDROBROMIDE [Suspect]
     Dosage: 15 MILLIGRAM;
     Route: 064
  4. ALPRAZOLAM [Concomitant]
     Dosage: 0.25 [MG/D ]/ ONLY TWO TIMES
     Route: 064
     Dates: start: 20090527

REACTIONS (1)
  - SMALL FOR DATES BABY [None]
